FAERS Safety Report 12925436 (Version 1)
Quarter: 2016Q4

REPORT INFORMATION
  Report Type: Report from Study
  Country: GB (occurrence: GB)
  Receive Date: 20161109
  Receipt Date: 20161109
  Transmission Date: 20170207
  Serious: Yes (Other)
  Sender: FDA-Public Use
  Company Number: GB-GILEAD-2016-0241932

PATIENT
  Age: 33 Year
  Sex: Male

DRUGS (1)
  1. EMTRICITABINE/RILPIVIRINE/TENOFOVIR DF [Suspect]
     Active Substance: EMTRICITABINE\RILPIVIRINE\TENOFOVIR DISOPROXIL FUMARATE
     Indication: PRODUCT USED FOR UNKNOWN INDICATION
     Dosage: 15 DF, ONCE
     Route: 065
     Dates: start: 20161101, end: 20161101

REACTIONS (3)
  - Vomiting [Unknown]
  - Mental disorder [Unknown]
  - Overdose [Unknown]

NARRATIVE: CASE EVENT DATE: 20161101
